FAERS Safety Report 7114103-4 (Version None)
Quarter: 2010Q4

REPORT INFORMATION
  Report Type: 
  Country: None (occurrence: None)
  Receive Date: 20101119
  Receipt Date: 20101115
  Transmission Date: 20110411
  Serious: Yes (Other)
  Sender: FDA-Public Use
  Company Number: US-PFIZER INC-2010149676

PATIENT
  Sex: Female

DRUGS (2)
  1. R-GENE [Suspect]
     Indication: GROWTH HORMONE DEFICIENCY
     Dosage: 10 %, UNK
     Route: 042
     Dates: start: 20101109
  2. CLONIDINE [Concomitant]
     Dosage: UNK

REACTIONS (3)
  - COUGH [None]
  - RESPIRATORY DISTRESS [None]
  - THROAT IRRITATION [None]
